FAERS Safety Report 20502559 (Version 1)
Quarter: 2022Q1

REPORT INFORMATION
  Report Type: Spontaneous
  Country: US (occurrence: None)
  Receive Date: 20220219
  Receipt Date: 20220219
  Transmission Date: 20220424
  Serious: No
  Sender: FDA-Public Use
  Company Number: None

PATIENT
  Age: 75 Year
  Sex: Male
  Weight: 57.6 kg

DRUGS (15)
  1. ENTRESTO [Suspect]
     Active Substance: SACUBITRIL\VALSARTAN
     Indication: Cardiac failure
     Dosage: OTHER QUANTITY : 1 TABLET(S);?FREQUENCY : TWICE A DAY;?
     Route: 048
     Dates: start: 20220118, end: 20220218
  2. ATORVASTATIN [Concomitant]
     Active Substance: ATORVASTATIN
  3. TESTOSTERONE CYPIONATE [Concomitant]
     Active Substance: TESTOSTERONE CYPIONATE
  4. DOXAZOSIN [Concomitant]
     Active Substance: DOXAZOSIN MESYLATE
  5. FARXIGA [Concomitant]
     Active Substance: DAPAGLIFLOZIN PROPANEDIOL
  6. CARVEDILOL [Concomitant]
     Active Substance: CARVEDILOL
  7. CLONAZEPAM [Concomitant]
     Active Substance: CLONAZEPAM
  8. OMEPRAZOLE [Concomitant]
     Active Substance: OMEPRAZOLE
  9. MYRBETRIQ [Concomitant]
     Active Substance: MIRABEGRON
  10. MYRBETRIQ [Concomitant]
     Active Substance: MIRABEGRON
  11. MULTI-VITAMIN [Concomitant]
  12. VITAMIN D [Concomitant]
     Active Substance: VITAMIN D NOS
  13. BETA CAROTENE [Concomitant]
     Active Substance: BETA CAROTENE
  14. COENZYME Q10 [Concomitant]
     Active Substance: DIETARY SUPPLEMENT\UBIDECARENONE
  15. PROBIOTIC [Concomitant]

REACTIONS (3)
  - Diarrhoea [None]
  - Abdominal pain [None]
  - Therapy interrupted [None]

NARRATIVE: CASE EVENT DATE: 20220124
